FAERS Safety Report 24310508 (Version 1)
Quarter: 2024Q3

REPORT INFORMATION
  Report Type: Report from Study
  Country: US (occurrence: None)
  Receive Date: 20240912
  Receipt Date: 20240912
  Transmission Date: 20241017
  Serious: Yes (Hospitalization)
  Sender: ASTRAZENECA
  Company Number: 2024A201890

PATIENT
  Sex: Female
  Weight: 76 kg

DRUGS (17)
  1. FASENRA [Suspect]
     Active Substance: BENRALIZUMAB
     Indication: Asthma
     Route: 058
     Dates: start: 20211203
  2. RITALIN [Concomitant]
     Active Substance: METHYLPHENIDATE HYDROCHLORIDE
  3. LEVSIN-SL [Concomitant]
  4. VOLTAREN [Concomitant]
     Active Substance: DICLOFENAC SODIUM
     Indication: Arthritis
  5. ARAVA [Concomitant]
     Active Substance: LEFLUNOMIDE
  6. ALBUTEROL SULFATE [Concomitant]
     Active Substance: ALBUTEROL SULFATE
  7. METHOTREXATE [Concomitant]
     Active Substance: METHOTREXATE
  8. BREZTRI [Concomitant]
     Active Substance: BUDESONIDE\FORMOTEROL\GLYCOPYRROLATE
  9. ALBUTEROL\IPRATROPIUM BROMIDE [Concomitant]
     Active Substance: ALBUTEROL\IPRATROPIUM BROMIDE
  10. MYRBETRIQ [Concomitant]
     Active Substance: MIRABEGRON
  11. FOLIC ACID [Concomitant]
     Active Substance: FOLIC ACID
  12. HYOSCYAMINE SULFATE [Concomitant]
     Active Substance: HYOSCYAMINE SULFATE
  13. OMEPRAZOLE [Concomitant]
     Active Substance: OMEPRAZOLE
  14. HIPREX [Concomitant]
     Active Substance: METHENAMINE HIPPURATE
  15. BACLOFEN [Concomitant]
     Active Substance: BACLOFEN
     Dosage: 100 % POWDER
  16. PROLIA [Concomitant]
     Active Substance: DENOSUMAB
     Dosage: SYRINGE60MG/ML
  17. ATENOLOL [Concomitant]
     Active Substance: ATENOLOL

REACTIONS (2)
  - Localised infection [Unknown]
  - Product dose omission issue [Unknown]
